FAERS Safety Report 25320165 (Version 1)
Quarter: 2025Q2

REPORT INFORMATION
  Report Type: Spontaneous
  Country: US (occurrence: US)
  Receive Date: 20250515
  Receipt Date: 20250515
  Transmission Date: 20250716
  Serious: Yes (Death, Life-Threatening, Hospitalization)
  Sender: SANDOZ
  Company Number: US-MLMSERVICE-20250425-PI490831-00232-1

PATIENT
  Age: 8 Decade
  Sex: Female

DRUGS (3)
  1. CELLCEPT [Suspect]
     Active Substance: MYCOPHENOLATE MOFETIL
     Indication: Immunosuppressant drug therapy
     Dosage: 150 MG, BID
     Route: 065
  2. PREDNISONE [Suspect]
     Active Substance: PREDNISONE
     Indication: Immunosuppressant drug therapy
     Dosage: 8 MG, QD
     Route: 065
  3. TACROLIMUS [Suspect]
     Active Substance: TACROLIMUS
     Indication: Immunosuppressant drug therapy
     Dosage: 3 MG, BID
     Route: 065

REACTIONS (10)
  - Post transplant lymphoproliferative disorder [Fatal]
  - Large intestinal obstruction [Unknown]
  - Distributive shock [Fatal]
  - Diffuse large B-cell lymphoma [Fatal]
  - Epstein-Barr virus associated lymphoma [Fatal]
  - Acute respiratory distress syndrome [Unknown]
  - Atrial fibrillation [Unknown]
  - Cytokine storm [Unknown]
  - Immunosuppressant drug level increased [Unknown]
  - Disease progression [Unknown]
